FAERS Safety Report 15084501 (Version 1)
Quarter: 2018Q2

REPORT INFORMATION
  Report Type: Spontaneous
  Country: US (occurrence: US)
  Receive Date: 20180608
  Receipt Date: 20180608
  Transmission Date: 20180711
  Serious: No
  Sender: FDA-Public Use
  Company Number: None

PATIENT
  Age: 63 Year
  Sex: Female

DRUGS (1)
  1. STELARA [Suspect]
     Active Substance: USTEKINUMAB
     Dates: start: 20180109, end: 20180608

REACTIONS (3)
  - Arthralgia [None]
  - Diarrhoea [None]
  - Swelling [None]

NARRATIVE: CASE EVENT DATE: 20180503
